FAERS Safety Report 21219097 (Version 2)
Quarter: 2022Q3

REPORT INFORMATION
  Report Type: Spontaneous
  Country: TR (occurrence: TR)
  Receive Date: 20220816
  Receipt Date: 20220921
  Transmission Date: 20221026
  Serious: Yes (Life-Threatening)
  Sender: FDA-Public Use
  Company Number: TR-CELLTRION INC.-2022TR013033

PATIENT

DRUGS (4)
  1. HERZUMA [Suspect]
     Active Substance: TRASTUZUMAB-PKRB
     Indication: HER2 positive breast cancer
     Dosage: LOADING DOSE 8 MILLIGRAM/KILOGRAM (FREQUENCY OF 21 DAYS)
     Route: 042
  2. HERZUMA [Suspect]
     Active Substance: TRASTUZUMAB-PKRB
     Dosage: (MAINTENANCE DOSE) 6 MILLIGRAM/KILOGRAM (FREQUENCY OF 21 DAYS)
     Route: 042
  3. DOCETAXEL [Concomitant]
     Active Substance: DOCETAXEL
     Route: 050
  4. CARBOPLATIN [Concomitant]
     Active Substance: CARBOPLATIN
     Route: 050

REACTIONS (8)
  - Vasculitis [Recovering/Resolving]
  - Skin toxicity [Recovering/Resolving]
  - Leukocytosis [Recovering/Resolving]
  - Pyrexia [Recovering/Resolving]
  - Tachycardia [Recovering/Resolving]
  - Tremor [Recovering/Resolving]
  - Pyrexia [Unknown]
  - Chills [Unknown]

NARRATIVE: CASE EVENT DATE: 20220720
